FAERS Safety Report 20030163 (Version 1)
Quarter: 2021Q4

REPORT INFORMATION
  Report Type: Spontaneous
  Country: US (occurrence: None)
  Receive Date: 20211103
  Receipt Date: 20211103
  Transmission Date: 20220303
  Serious: No
  Sender: FDA-Public Use
  Company Number: 2021A780603

PATIENT
  Age: 26417 Day
  Sex: Male
  Weight: 106.6 kg

DRUGS (4)
  1. BREZTRI [Suspect]
     Active Substance: BUDESONIDE\FORMOTEROL\GLYCOPYRROLATE
     Indication: Chronic obstructive pulmonary disease
     Dosage: 160/8/4.8MCG, 2 PUFFS DAILY
     Route: 055
     Dates: start: 20210922
  2. HYDROCHLOROTHIAZIDE [Concomitant]
     Active Substance: HYDROCHLOROTHIAZIDE
  3. ALLOPURINOL [Concomitant]
     Active Substance: ALLOPURINOL
  4. FLOMAX [Concomitant]
     Active Substance: TAMSULOSIN HYDROCHLORIDE

REACTIONS (6)
  - Mucosal dryness [Recovering/Resolving]
  - Wheezing [Recovering/Resolving]
  - Abdominal pain upper [Unknown]
  - Memory impairment [Unknown]
  - Urine flow decreased [Unknown]
  - Product use issue [Unknown]

NARRATIVE: CASE EVENT DATE: 20210925
